FAERS Safety Report 16383457 (Version 1)
Quarter: 2019Q2

REPORT INFORMATION
  Report Type: Report from Study
  Country: TW (occurrence: TW)
  Receive Date: 20190603
  Receipt Date: 20190603
  Transmission Date: 20190711
  Serious: Yes (Other)
  Sender: FDA-Public Use
  Company Number: TW-ROCHE-2328111

PATIENT

DRUGS (1)
  1. RITUXIMAB. [Suspect]
     Active Substance: RITUXIMAB
     Indication: PEMPHIGUS
     Route: 042

REACTIONS (32)
  - Pneumocystis jirovecii pneumonia [Unknown]
  - Erythema multiforme [Unknown]
  - Herpes zoster [Unknown]
  - Urinary tract infection [Unknown]
  - Hepatic enzyme abnormal [Unknown]
  - Onycholysis [Unknown]
  - Wound infection [Unknown]
  - Meningitis [Unknown]
  - Cardiac failure chronic [Unknown]
  - Candida infection [Unknown]
  - Herpes simplex [Unknown]
  - Body tinea [Unknown]
  - Paronychia [Unknown]
  - Deafness [Unknown]
  - Nasopharyngitis [Unknown]
  - Septic shock [Unknown]
  - Cytopenia [Unknown]
  - Skin papilloma [Unknown]
  - Folliculitis [Unknown]
  - Gastroenteritis eosinophilic [Unknown]
  - Urticaria [Unknown]
  - Hepatitis B reactivation [Unknown]
  - Diarrhoea infectious [Unknown]
  - Infusion related reaction [Unknown]
  - Arthralgia [Unknown]
  - Serum sickness-like reaction [Unknown]
  - Gastroenteritis [Unknown]
  - Pneumonia necrotising [Unknown]
  - Interstitial lung disease [Unknown]
  - Skin infection [Unknown]
  - Parotitis [Unknown]
  - Infection [Unknown]
